FAERS Safety Report 20963847 (Version 2)
Quarter: 2022Q2

REPORT INFORMATION
  Report Type: Spontaneous
  Country: ES (occurrence: ES)
  Receive Date: 20220615
  Receipt Date: 20220629
  Transmission Date: 20220721
  Serious: Yes (Hospitalization, Other)
  Sender: FDA-Public Use
  Company Number: ES-ALLERGAN-2219389US

PATIENT
  Sex: Female

DRUGS (2)
  1. MORPHINE SULFATE [Suspect]
     Active Substance: MORPHINE SULFATE
     Indication: Product used for unknown indication
     Dosage: DELAYED-RELEASE
     Route: 048
  2. TRAMADOL [Suspect]
     Active Substance: TRAMADOL
     Indication: Product used for unknown indication
     Route: 048

REACTIONS (3)
  - Troponin I increased [Recovering/Resolving]
  - Overdose [Recovered/Resolved]
  - Intentional product use issue [Unknown]
